FAERS Safety Report 7644257-2 (Version None)
Quarter: 2011Q3

REPORT INFORMATION
  Report Type: 
  Country: None (occurrence: None)
  Receive Date: 20110729
  Receipt Date: 20110721
  Transmission Date: 20111222
  Serious: Yes (Other)
  Sender: FDA-Public Use
  Company Number: PHHY2011AU60310

PATIENT
  Sex: Female
  Weight: 125 kg

DRUGS (2)
  1. SANDOSTATIN LAR [Suspect]
     Indication: CARCINOID TUMOUR
     Dosage: 30 MG, TWICE A MONTH
  2. CHEMOTHERAPEUTICS [Concomitant]

REACTIONS (3)
  - OVERDOSE [None]
  - NEOPLASM PROGRESSION [None]
  - DRUG INEFFECTIVE [None]
